FAERS Safety Report 5349494-8 (Version None)
Quarter: 2007Q2

REPORT INFORMATION
  Report Type: 
  Country: None (occurrence: None)
  Receive Date: 20070504
  Receipt Date: 20060901
  Transmission Date: 20071010
  Serious: Yes (Hospitalization)
  Sender: FDA-Public Use
  Company Number: PHEH2006US11284

PATIENT
  Age: 67 Year
  Sex: Male

DRUGS (2)
  1. DIOVAN HCT [Suspect]
     Indication: HYPERTENSION
     Dosage: 320MG VAL/25MG HCT, QD
     Dates: start: 20060201, end: 20060710
  2. GLIPIZIDE [Concomitant]

REACTIONS (7)
  - BLOOD GLUCOSE INCREASED [None]
  - BLOOD PRESSURE INADEQUATELY CONTROLLED [None]
  - BOWEL MOVEMENT IRREGULARITY [None]
  - DEHYDRATION [None]
  - FATIGUE [None]
  - FLATULENCE [None]
  - PAIN IN EXTREMITY [None]
